FAERS Safety Report 12081050 (Version 2)
Quarter: 2016Q1

REPORT INFORMATION
  Report Type: Spontaneous
  Country: US (occurrence: US)
  Receive Date: 20160216
  Receipt Date: 20160225
  Transmission Date: 20160526
  Serious: Yes (Other)
  Sender: FDA-Public Use
  Company Number: US-PFIZER INC-2016082049

PATIENT
  Age: 75 Year
  Sex: Female
  Weight: 54.88 kg

DRUGS (13)
  1. TUMS [Concomitant]
     Active Substance: CALCIUM CARBONATE
     Dosage: 200 MG, UNK (200 MG (600 MG) CHEWABLE TAB)
  2. LEVOXYL [Concomitant]
     Active Substance: LEVOTHYROXINE SODIUM
     Dosage: 112 UG, UNK
  3. ETHEDENT [Concomitant]
     Dosage: UNK
  4. OSCAL [Concomitant]
     Active Substance: CALCIUM CARBONATE
     Dosage: 200 IU, UNK (, OS-CAL 500 + D 500 MG (1,250 MG))
  5. LORAZEPAM. [Concomitant]
     Active Substance: LORAZEPAM
     Dosage: 0.5 MG, UNK
  6. SLOW-MAG [Concomitant]
     Active Substance: MAGNESIUM CHLORIDE
     Dosage: 71.5 MG, UNK
  7. FOLIC ACID. [Concomitant]
     Active Substance: FOLIC ACID
     Dosage: 400 UG, UNK
  8. VITAMIN D [Concomitant]
     Active Substance: CHOLECALCIFEROL
     Dosage: 2000 IU, UNK
  9. VITAMIN D [Concomitant]
     Active Substance: CHOLECALCIFEROL
     Dosage: UNK
  10. IBRANCE [Suspect]
     Active Substance: PALBOCICLIB
     Indication: BREAST CANCER FEMALE
     Dosage: 125 MG, CYCLIC (21 DAYS/7 OFF)
     Route: 048
     Dates: start: 20150604
  11. FISH OIL [Concomitant]
     Active Substance: FISH OIL
     Dosage: 1000 MG, UNK
  12. FEMARA [Concomitant]
     Active Substance: LETROZOLE
     Indication: BREAST CANCER FEMALE
     Dosage: 2.6 MG, UNK
     Dates: start: 20150604
  13. XGEVA [Concomitant]
     Active Substance: DENOSUMAB
     Dosage: 70 MG/ML, UNK (120 MG/1.7 ML)

REACTIONS (6)
  - Disease progression [Unknown]
  - Fatigue [Unknown]
  - Deafness [Unknown]
  - Breast cancer metastatic [Unknown]
  - Constipation [Unknown]
  - Neutropenia [Unknown]

NARRATIVE: CASE EVENT DATE: 20150625
